FAERS Safety Report 8772040 (Version 2)
Quarter: 2013Q1

REPORT INFORMATION
  Report Type: Report from Study
  Country: JP (occurrence: JP)
  Receive Date: 20120906
  Receipt Date: 20130204
  Transmission Date: 20140127
  Serious: Yes (Other)
  Sender: FDA-Public Use
  Company Number: JP-009507513-2012SP021988

PATIENT
  Age: 65 Year
  Sex: Male
  Weight: 52 kg

DRUGS (19)
  1. PEGINTRON [Suspect]
     Indication: CHRONIC HEPATITIS C
     Dosage: 1.5 MICROGRAM PER KILOGRAM, QW
     Route: 058
     Dates: start: 20120229, end: 20120808
  2. REBETOL [Suspect]
     Indication: CHRONIC HEPATITIS C
     Dosage: 600 MG, QD
     Route: 048
     Dates: start: 20120229, end: 20120411
  3. REBETOL [Suspect]
     Dosage: 200 MG, QD
     Route: 048
     Dates: start: 20120412, end: 20120612
  4. REBETOL [Suspect]
     Dosage: 400 MG, QD
     Route: 048
     Dates: start: 20120613, end: 20120619
  5. REBETOL [Suspect]
     Dosage: 600 MG, QD
     Route: 048
     Dates: start: 20120620, end: 20120814
  6. TELAVIC [Suspect]
     Indication: CHRONIC HEPATITIS C
     Dosage: 2250 MG, QD
     Route: 048
     Dates: start: 20120229, end: 20120327
  7. TELAVIC [Suspect]
     Dosage: 1500 MG, QD
     Route: 048
     Dates: start: 20120328, end: 20120516
  8. ALOSITOL [Concomitant]
     Indication: CHRONIC HEPATITIS C
     Dosage: 200 MG, QD
     Route: 048
     Dates: start: 20120303
  9. VICCLOX [Concomitant]
     Indication: HERPES ZOSTER
     Dosage: 250 MG, TID
     Route: 042
     Dates: start: 20120305, end: 20120311
  10. CLARITIN [Concomitant]
     Indication: CHRONIC HEPATITIS C
     Dosage: 10 MG, QD
     Route: 048
     Dates: start: 20120305, end: 20120814
  11. CLARITIN [Concomitant]
     Indication: PROPHYLAXIS
  12. ALLEGRA [Concomitant]
     Indication: HYPERSENSITIVITY
     Dosage: 30 MG, BID, FORMULATION POR (DETAILS UNSPECIFIED)
     Route: 048
     Dates: start: 20120305
  13. ALLEGRA [Concomitant]
     Indication: PROPHYLAXIS
  14. MAGMITT [Concomitant]
     Indication: CONSTIPATION
     Dosage: 1000 MG, QD, FORMULATION POR
     Route: 048
     Dates: start: 20120314
  15. MYSER (CYCLOSERINE) [Concomitant]
     Indication: HYPERSENSITIVITY
     Dosage: UNK UNK, UNKNOWN
     Route: 065
  16. MECOBALAMIN [Concomitant]
     Dosage: 1500 MG, QD, FORMULATION: POR
     Route: 048
     Dates: start: 20120308, end: 20120403
  17. SLOW-K [Concomitant]
     Indication: BLOOD POTASSIUM DECREASED
     Dosage: 600 MG, QD, FORMULATION: POR
     Route: 048
     Dates: start: 20120404, end: 20120814
  18. SLOW-K [Concomitant]
     Indication: CHRONIC HEPATITIS C
  19. ALLEGRA [Concomitant]
     Indication: CHRONIC HEPATITIS C
     Dosage: 120 MG, QD

REACTIONS (5)
  - Eczema [Recovering/Resolving]
  - Hyperuricaemia [Recovered/Resolved]
  - Malaise [Recovering/Resolving]
  - Decreased appetite [Recovering/Resolving]
  - Retinal haemorrhage [Recovering/Resolving]
